FAERS Safety Report 9298533 (Version 1)
Quarter: 2013Q1

REPORT INFORMATION
  Report Type: Spontaneous
  Country: US (occurrence: None)
  Receive Date: 20121227
  Receipt Date: 20121227
  Transmission Date: 20140127
  Serious: Yes (Other)
  Sender: FDA-Public Use
  Company Number: PHEH2012US022737

PATIENT
  Sex: 0

DRUGS (1)
  1. AFINITOR [Suspect]

REACTIONS (1)
  - Angioedema [None]
